FAERS Safety Report 15794217 (Version 1)
Quarter: 2019Q1

REPORT INFORMATION
  Report Type: Spontaneous
  Country: CN (occurrence: CN)
  Receive Date: 20190107
  Receipt Date: 20190107
  Transmission Date: 20190417
  Serious: Yes (Other)
  Sender: FDA-Public Use
  Company Number: CN-PFIZER INC-2019000887

PATIENT
  Age: 88 Year
  Sex: Male
  Weight: 40 kg

DRUGS (3)
  1. CEFOPERAZONE SODIUM [Suspect]
     Active Substance: CEFOPERAZONE SODIUM
     Indication: PNEUMONIA
     Dosage: 2 G, 2X/DAY (EVERY 12 HOURS)
     Route: 041
     Dates: start: 20181016, end: 20181018
  2. GU YU [Concomitant]
     Indication: OSTEOPOROSIS
     Dosage: 60 UG, 1X/DAY
     Route: 041
     Dates: start: 20181014, end: 20181022
  3. CALCIUM GLUCONATE. [Concomitant]
     Active Substance: CALCIUM GLUCONATE
     Indication: OSTEOPOROSIS
     Dosage: 1 G, 1X/DAY
     Route: 042
     Dates: start: 20181015, end: 20181022

REACTIONS (1)
  - Hallucination [Recovered/Resolved]

NARRATIVE: CASE EVENT DATE: 20181019
